FAERS Safety Report 14752427 (Version 12)
Quarter: 2020Q4

REPORT INFORMATION
  Report Type: Report from Study
  Country: None (occurrence: NL)
  Receive Date: 20180412
  Receipt Date: 20201222
  Transmission Date: 20210113
  Serious: Yes (Hospitalization)
  Sender: FDA-Public Use
  Company Number: NL-ABBVIE-18K-114-2314468-00

PATIENT
  Sex: Male
  Weight: 63 kg

DRUGS (17)
  1. DUODOPA [Suspect]
     Active Substance: CARBIDOPA\LEVODOPA
     Indication: PARKINSON^S DISEASE
     Dosage: MD: 10ML CD: 1.3 ML ED:1.0 ML
     Route: 050
     Dates: start: 20180307, end: 2018
  2. DUODOPA [Suspect]
     Active Substance: CARBIDOPA\LEVODOPA
     Dosage: MD 5.0, CD 3.0, ED 2.0, NIGHT CD 1.5, NIGHT ED 1.0
     Route: 050
     Dates: start: 2018
  3. DUODOPA [Suspect]
     Active Substance: CARBIDOPA\LEVODOPA
     Dosage: MD: 5.0ML CD: 3.3ML/H ED: 2.0ML CDN: 1.5ML/H EDN: 1.2ML?REMAINS AT 24 HOURS
     Route: 050
  4. ROPINIROLE. [Concomitant]
     Active Substance: ROPINIROLE
     Indication: PRODUCT USED FOR UNKNOWN INDICATION
     Dates: start: 20180531
  5. DUODOPA [Suspect]
     Active Substance: CARBIDOPA\LEVODOPA
     Dosage: MD: 10.0, CD: 1.9, ED: 2.0
     Route: 050
     Dates: start: 2018, end: 2018
  6. DUODOPA [Suspect]
     Active Substance: CARBIDOPA\LEVODOPA
     Dosage: MD 8.0, CD 2.4
     Route: 050
     Dates: start: 2018, end: 2018
  7. DUODOPA [Suspect]
     Active Substance: CARBIDOPA\LEVODOPA
     Dosage: MD 5.0 ML CD3.3 ML/HR ED 2.0 ML
     Route: 050
  8. DUODOPA [Suspect]
     Active Substance: CARBIDOPA\LEVODOPA
     Dosage: MD:9.0, CD: 2.1, ED: 2.0
     Route: 050
     Dates: start: 2018, end: 2018
  9. DUODOPA [Suspect]
     Active Substance: CARBIDOPA\LEVODOPA
     Dosage: MD: 5.0ML CD: 3.2ML/H ED: 2.0ML CDN: 1.2ML/H EDN: 2.0ML?REMAINS AT 24 HOURS
     Route: 050
  10. DUODOPA [Suspect]
     Active Substance: CARBIDOPA\LEVODOPA
     Dosage: MORNING DOSE: 10ML? ?CONTINUOUS DOSE: 1.5 ML?EXTRA DOSE:1.0 ML
     Route: 050
     Dates: start: 2018, end: 2018
  11. DUODOPA [Suspect]
     Active Substance: CARBIDOPA\LEVODOPA
     Dosage: MD: 10 CD: 1.9 ED:1.0
     Route: 050
     Dates: start: 2018, end: 2018
  12. DUODOPA [Suspect]
     Active Substance: CARBIDOPA\LEVODOPA
     Dosage: MD 5.0ML, CD 3.6 ML/H, ED 2.0ML, CDN 1.5ML/H,  EDN 1.2ML
     Route: 050
     Dates: start: 20180319
  13. LAXANS [Concomitant]
     Indication: ABNORMAL FAECES
  14. CLOZAPINE. [Concomitant]
     Active Substance: CLOZAPINE
     Dosage: INCREASED
  15. DUODOPA [Suspect]
     Active Substance: CARBIDOPA\LEVODOPA
     Dosage: MD: 5.0ML CD: 3.5ML/H ED: 2.0ML CDN: 1.5ML/H EDN: 1.2ML?REMAINS AT 24 HOURS
     Route: 050
  16. LEVODOPA [Concomitant]
     Active Substance: LEVODOPA
     Indication: PRODUCT USED FOR UNKNOWN INDICATION
     Route: 048
  17. CLOZAPINE. [Concomitant]
     Active Substance: CLOZAPINE
     Indication: PRODUCT USED FOR UNKNOWN INDICATION

REACTIONS (61)
  - Unevaluable event [Not Recovered/Not Resolved]
  - Anger [Not Recovered/Not Resolved]
  - Dysphonia [Not Recovered/Not Resolved]
  - Muscle spasms [Not Recovered/Not Resolved]
  - Insomnia [Recovered/Resolved]
  - Therapeutic product effect decreased [Not Recovered/Not Resolved]
  - Bone lesion [Not Recovered/Not Resolved]
  - Delirium [Recovered/Resolved]
  - Nasopharyngitis [Recovered/Resolved]
  - On and off phenomenon [Not Recovered/Not Resolved]
  - Sluggishness [Unknown]
  - Time perception altered [Unknown]
  - Emphysema [Not Recovered/Not Resolved]
  - Faeces hard [Not Recovered/Not Resolved]
  - Vision blurred [Not Recovered/Not Resolved]
  - Psychotic disorder [Unknown]
  - Anger [Not Recovered/Not Resolved]
  - Muscle rigidity [Not Recovered/Not Resolved]
  - Muscle tightness [Not Recovered/Not Resolved]
  - Mental impairment [Not Recovered/Not Resolved]
  - Stoma site erythema [Not Recovered/Not Resolved]
  - Thinking abnormal [Not Recovered/Not Resolved]
  - Hallucination, visual [Not Recovered/Not Resolved]
  - Anxiety [Not Recovered/Not Resolved]
  - Therapeutic product effect incomplete [Unknown]
  - Stress [Not Recovered/Not Resolved]
  - Weight decreased [Not Recovered/Not Resolved]
  - Memory impairment [Not Recovered/Not Resolved]
  - Somnolence [Not Recovered/Not Resolved]
  - Fibroma [Not Recovered/Not Resolved]
  - Paraesthesia [Not Recovered/Not Resolved]
  - Dystonia [Not Recovered/Not Resolved]
  - Disorientation [Not Recovered/Not Resolved]
  - Dyspnoea [Not Recovered/Not Resolved]
  - Bradykinesia [Not Recovered/Not Resolved]
  - Irregular sleep wake rhythm disorder [Not Recovered/Not Resolved]
  - Disorientation [Not Recovered/Not Resolved]
  - Extra dose administered [Not Recovered/Not Resolved]
  - Musculoskeletal stiffness [Unknown]
  - Agitation [Not Recovered/Not Resolved]
  - Malaise [Not Recovered/Not Resolved]
  - Dysuria [Not Recovered/Not Resolved]
  - Decreased appetite [Not Recovered/Not Resolved]
  - Confusional state [Not Recovered/Not Resolved]
  - Cognitive disorder [Not Recovered/Not Resolved]
  - Hallucination [Not Recovered/Not Resolved]
  - Freezing phenomenon [Not Recovered/Not Resolved]
  - Cough [Recovered/Resolved]
  - Head discomfort [Not Recovered/Not Resolved]
  - Muscle rigidity [Unknown]
  - Enuresis [Unknown]
  - Chronic obstructive pulmonary disease [Not Recovered/Not Resolved]
  - Dyskinesia [Not Recovered/Not Resolved]
  - Confusional state [Not Recovered/Not Resolved]
  - Influenza [Recovered/Resolved]
  - Abnormal dreams [Not Recovered/Not Resolved]
  - Feeling abnormal [Not Recovered/Not Resolved]
  - Bradyphrenia [Unknown]
  - Nocturia [Recovered/Resolved]
  - Stoma site erythema [Recovered/Resolved]
  - Restlessness [Not Recovered/Not Resolved]

NARRATIVE: CASE EVENT DATE: 2018
